FAERS Safety Report 16445132 (Version 1)
Quarter: 2019Q2

REPORT INFORMATION
  Report Type: Spontaneous
  Country: RO (occurrence: RO)
  Receive Date: 20190618
  Receipt Date: 20190618
  Transmission Date: 20190711
  Serious: Yes (Hospitalization, Other)
  Sender: FDA-Public Use
  Company Number: RO-MYLANLABS-2019M1056563

PATIENT
  Age: 6 Year
  Sex: Male
  Weight: 23 kg

DRUGS (1)
  1. IBUPROFEN. [Suspect]
     Active Substance: IBUPROFEN
     Indication: PYREXIA
     Dosage: 3 DOSES OF 100 MG (TWO HOURS APART EACH OTHER) FOLLOWED BY 190 MG 6 H LATER

REACTIONS (2)
  - Gastritis haemorrhagic [Recovering/Resolving]
  - Inappropriate schedule of product administration [Unknown]
